FAERS Safety Report 19956122 (Version 1)
Quarter: 2021Q4

REPORT INFORMATION
  Report Type: Spontaneous
  Country: US (occurrence: US)
  Receive Date: 20211014
  Receipt Date: 20211014
  Transmission Date: 20220304
  Serious: No
  Sender: FDA-Public Use
  Company Number: US-PFIZER INC-2021874262

PATIENT
  Age: 45 Year
  Sex: Female
  Weight: 74.84 kg

DRUGS (2)
  1. FLAGYL [Suspect]
     Active Substance: METRONIDAZOLE\METRONIDAZOLE HYDROCHLORIDE
     Dosage: 500 MG, ONCE A DAY FOR 7 DAYS
     Route: 048
     Dates: start: 20210226, end: 20210304
  2. METRONIDAZOLE [Suspect]
     Active Substance: METRONIDAZOLE
     Dosage: UNK
     Dates: start: 20210226, end: 20210304

REACTIONS (3)
  - Dysgeusia [Recovered/Resolved]
  - Oral candidiasis [Recovered/Resolved]
  - Burning sensation mucosal [Not Recovered/Not Resolved]

NARRATIVE: CASE EVENT DATE: 20210201
